FAERS Safety Report 14713827 (Version 1)
Quarter: 2018Q2

REPORT INFORMATION
  Report Type: Other
  Country: IT (occurrence: IT)
  Receive Date: 20180404
  Receipt Date: 20180404
  Transmission Date: 20180711
  Serious: Yes (Hospitalization)
  Sender: FDA-Public Use
  Company Number: IT-CONCORDIA PHARMACEUTICALS INC.-E2B_00010862

PATIENT
  Age: 87 Year
  Sex: Male

DRUGS (9)
  1. PROCAPTAN [Concomitant]
     Active Substance: PERINDOPRIL ERBUMINE
  2. AVODART [Concomitant]
     Active Substance: DUTASTERIDE
  3. FELODIPINE. [Concomitant]
     Active Substance: FELODIPINE
  4. FLUXUM [Concomitant]
     Active Substance: PARNAPARIN SODIUM
  5. LANOXIN [Suspect]
     Active Substance: DIGOXIN
     Indication: CARDIAC FAILURE
     Route: 048
     Dates: start: 20170101, end: 20170728
  6. TAPAZOLE [Suspect]
     Active Substance: METHIMAZOLE
     Indication: HYPERTHYROIDISM
     Route: 048
     Dates: start: 20170101, end: 20170728
  7. TAMSULOSIN [Concomitant]
     Active Substance: TAMSULOSIN
  8. FUROSEMIDE. [Concomitant]
     Active Substance: FUROSEMIDE
  9. TACHIDOL [Concomitant]
     Active Substance: ACETAMINOPHEN\CODEINE PHOSPHATE

REACTIONS (4)
  - Hypertension [Unknown]
  - Cardiac failure [Unknown]
  - Dyspnoea [Unknown]
  - Myalgia [Unknown]

NARRATIVE: CASE EVENT DATE: 20170728
